FAERS Safety Report 4708436-6 (Version None)
Quarter: 2005Q3

REPORT INFORMATION
  Report Type: 
  Country: None (occurrence: None)
  Receive Date: 20050707
  Receipt Date: 20050630
  Transmission Date: 20060218
  Serious: Yes (Hospitalization)
  Sender: FDA-Public Use
  Company Number: DE-BRISTOL-MYERS SQUIBB COMPANY-13020979

PATIENT
  Age: 66 Year
  Sex: Male

DRUGS (17)
  1. CISPLATIN [Suspect]
     Indication: SMALL CELL LUNG CANCER STAGE UNSPECIFIED
     Route: 042
     Dates: start: 20050109, end: 20050109
  2. TOPOTECAN HCL [Suspect]
     Indication: SMALL CELL LUNG CANCER STAGE UNSPECIFIED
     Route: 042
     Dates: start: 20050105, end: 20050109
  3. DIAZEPAM [Concomitant]
  4. FORMOTEROL [Concomitant]
  5. DICODID [Concomitant]
  6. DIHYDROCODEINE TARTRATE [Concomitant]
  7. TRIAMTERENE AND HYDROCHLOROTHIAZIDE [Concomitant]
  8. TEMAZEPAM [Concomitant]
  9. FLUNITRAZEPAM [Concomitant]
  10. SODIUM PICOSULPHATE [Concomitant]
  11. LOW MOLECULAR WEIGHT HEPARINS [Concomitant]
  12. PREDNISONE TAB [Concomitant]
  13. SYMBICORT [Concomitant]
  14. AMPHOTERICIN B [Concomitant]
  15. DIPYRONE INJ [Concomitant]
  16. METOCLOPRAMIDE HCL [Concomitant]
  17. ALLOPURINOL [Concomitant]

REACTIONS (3)
  - HERPES ZOSTER [None]
  - LEUKOPENIA [None]
  - THROMBOCYTOPENIA [None]
